FAERS Safety Report 24651514 (Version 1)
Quarter: 2024Q4

REPORT INFORMATION
  Report Type: Other
  Country: CA (occurrence: CA)
  Receive Date: 20241122
  Receipt Date: 20241122
  Transmission Date: 20250115
  Serious: Yes (Life-Threatening, Hospitalization, Other)
  Sender: LUPIN
  Company Number: CA-LUPIN PHARMACEUTICALS INC.-2024-11281

PATIENT

DRUGS (8)
  1. PROPRANOLOL [Suspect]
     Active Substance: PROPRANOLOL HYDROCHLORIDE
     Indication: Lymphangioma
     Dosage: UNK, QD (1.0 MG/K)
     Route: 048
  2. PREDNISONE [Suspect]
     Active Substance: PREDNISONE
     Indication: Lymphangioma
     Dosage: UNK, QD (1.0 MG/KG)
     Route: 065
  3. SIROLIMUS [Suspect]
     Active Substance: SIROLIMUS
     Indication: Lymphangioma
     Dosage: UNK (0.8 MG/M2)
     Route: 048
  4. SIROLIMUS [Suspect]
     Active Substance: SIROLIMUS
     Dosage: UNK (2.0 MG/M2)
     Route: 048
  5. SIROLIMUS [Suspect]
     Active Substance: SIROLIMUS
     Dosage: UNK (1.5 MG/M2)
     Route: 048
  6. SIROLIMUS [Suspect]
     Active Substance: SIROLIMUS
     Dosage: UNK
     Route: 048
  7. VINCRISTINE [Suspect]
     Active Substance: VINCRISTINE
     Indication: Lymphangioma
     Dosage: 1 DOSAGE FORM, QW (0.05 MG/KG)
     Route: 042
  8. VINCRISTINE [Suspect]
     Active Substance: VINCRISTINE
     Dosage: UNK
     Route: 042

REACTIONS (2)
  - Drug ineffective for unapproved indication [Unknown]
  - Off label use [Unknown]
